FAERS Safety Report 22151476 (Version 3)
Quarter: 2023Q2

REPORT INFORMATION
  Report Type: Spontaneous
  Country: US (occurrence: US)
  Receive Date: 20230329
  Receipt Date: 20230525
  Transmission Date: 20230722
  Serious: Yes (Disabling)
  Sender: FDA-Public Use
  Company Number: US-SA-SAC20230329000186

PATIENT
  Age: 74 Year
  Sex: Female

DRUGS (3)
  1. DUPIXENT [Suspect]
     Active Substance: DUPILUMAB
     Indication: Asthma
     Dosage: 300 MG, QOW
     Route: 058
     Dates: start: 202301
  2. DUPIXENT [Suspect]
     Active Substance: DUPILUMAB
     Indication: Chronic rhinosinusitis with nasal polyps
  3. PREDNISONE [Concomitant]
     Active Substance: PREDNISONE
     Dosage: UNK

REACTIONS (18)
  - Loss of personal independence in daily activities [Recovering/Resolving]
  - Wheezing [Recovering/Resolving]
  - Dyspnoea [Recovering/Resolving]
  - Chest discomfort [Recovering/Resolving]
  - Allergic cough [Recovering/Resolving]
  - Middle insomnia [Recovering/Resolving]
  - Parosmia [Recovering/Resolving]
  - Taste disorder [Recovering/Resolving]
  - Facial pain [Recovering/Resolving]
  - Ear pain [Recovering/Resolving]
  - Discomfort [Recovering/Resolving]
  - Ear discomfort [Recovering/Resolving]
  - Sinus headache [Recovering/Resolving]
  - Condition aggravated [Recovering/Resolving]
  - Allergic sinusitis [Recovering/Resolving]
  - Headache [Recovering/Resolving]
  - Periorbital swelling [Recovering/Resolving]
  - Eye pain [Recovering/Resolving]

NARRATIVE: CASE EVENT DATE: 20230201
